FAERS Safety Report 8610794 (Version 2)
Quarter: 2013Q4

REPORT INFORMATION
  Report Type: Spontaneous
  Country: FR (occurrence: FR)
  Receive Date: 20120612
  Receipt Date: 20131223
  Transmission Date: 20140711
  Serious: Yes (Hospitalization, Other)
  Sender: FDA-Public Use
  Company Number: FR-ELI_LILLY_AND_COMPANY-FR201206001092

PATIENT
  Age: 68 Year
  Sex: Male

DRUGS (6)
  1. ZYPREXA [Suspect]
     Indication: BIPOLAR DISORDER
     Dosage: 10 MG, QD
     Route: 048
     Dates: end: 20101007
  2. ZYPADHERA [Suspect]
     Indication: BIPOLAR DISORDER
     Dosage: 300 MG, OTHER
     Route: 030
     Dates: start: 20101007
  3. ZYPADHERA [Suspect]
     Dosage: 210 MG, OTHER
     Route: 030
  4. ZYPADHERA [Suspect]
     Dosage: 210 MG, OTHER
     Route: 030
     Dates: start: 201111
  5. DEPAKOTE [Concomitant]
     Indication: PRODUCT USED FOR UNKNOWN INDICATION
     Dosage: UNK UNK, UNKNOWN
     Route: 065
  6. VALIUM [Concomitant]
     Indication: PRODUCT USED FOR UNKNOWN INDICATION
     Dosage: UNK UNK, UNKNOWN
     Route: 065

REACTIONS (12)
  - Speech disorder [Recovered/Resolved]
  - Balance disorder [Recovered/Resolved]
  - Mental disorder [Recovered/Resolved]
  - Tachycardia [Recovered/Resolved]
  - Somnolence [Recovered/Resolved]
  - Fatigue [Recovered/Resolved]
  - Confusional state [Recovered/Resolved]
  - Sedation [Recovered/Resolved]
  - Asthenia [Recovered/Resolved]
  - Disorientation [Recovered/Resolved]
  - Blood pressure increased [Recovered/Resolved]
  - Inappropriate schedule of drug administration [Unknown]
